FAERS Safety Report 6828951-9 (Version None)
Quarter: 2010Q3

REPORT INFORMATION
  Report Type: 
  Country: None (occurrence: None)
  Receive Date: 20100709
  Receipt Date: 20070223
  Transmission Date: 20110219
  Serious: No
  Sender: FDA-Public Use
  Company Number: US-PFIZER INC-2007015818

PATIENT
  Sex: Male
  Weight: 67.1 kg

DRUGS (6)
  1. CHANTIX [Suspect]
     Indication: SMOKING CESSATION THERAPY
     Dates: start: 20070217, end: 20070201
  2. NEURONTIN [Interacting]
     Indication: INJURY
  3. LYRICA [Interacting]
     Indication: INJURY
  4. TRAMADOL HCL [Interacting]
     Indication: INJURY
  5. VICODIN [Interacting]
     Indication: INJURY
  6. INDOMETHACIN [Interacting]
     Indication: INJURY

REACTIONS (3)
  - DRUG INTERACTION [None]
  - HYPERCHLORHYDRIA [None]
  - INSOMNIA [None]
